FAERS Safety Report 7676436-2 (Version None)
Quarter: 2011Q3

REPORT INFORMATION
  Report Type: 
  Country: None (occurrence: None)
  Receive Date: 20110805
  Receipt Date: 20110725
  Transmission Date: 20111222
  Serious: Yes (Hospitalization, Other)
  Sender: FDA-Public Use
  Company Number: UCM201107-000043

PATIENT
  Age: 62 Year
  Sex: Female

DRUGS (3)
  1. DISULFIRAM [Suspect]
     Indication: ALCOHOLISM
     Dosage: 400 MG DAILY
  2. GAMMA HYDROXY BUTYRIC ACID [Suspect]
     Dosage: 46 MG/KG DAY (3500 MG/DAY)
  3. DIVALPROEX SODIUM [Suspect]
     Indication: MOOD ALTERED
     Dosage: 500 MG TWICE DAILY

REACTIONS (19)
  - HYPOMANIA [None]
  - DRUG RESISTANCE [None]
  - ILLOGICAL THINKING [None]
  - DYSPHORIA [None]
  - GAMMA-GLUTAMYLTRANSFERASE INCREASED [None]
  - CONFUSIONAL STATE [None]
  - ELECTROENCEPHALOGRAM ABNORMAL [None]
  - IDIOSYNCRATIC DRUG REACTION [None]
  - DISTURBANCE IN ATTENTION [None]
  - DRUG INTERACTION [None]
  - PSYCHOTIC DISORDER [None]
  - MEMORY IMPAIRMENT [None]
  - DELUSION [None]
  - GRAND MAL CONVULSION [None]
  - COGNITIVE DISORDER [None]
  - CONFABULATION [None]
  - ASPARTATE AMINOTRANSFERASE INCREASED [None]
  - NEUROTOXICITY [None]
  - ALANINE AMINOTRANSFERASE INCREASED [None]
